FAERS Safety Report 5472498-1 (Version None)
Quarter: 2007Q3

REPORT INFORMATION
  Report Type: 
  Country: None (occurrence: None)
  Receive Date: 20070927
  Receipt Date: 20070925
  Transmission Date: 20080115
  Serious: Yes (Life-Threatening, Hospitalization)
  Sender: FDA-Public Use
  Company Number: TCI2007A05010

PATIENT
  Age: 48 Year
  Sex: Male

DRUGS (1)
  1. LANSAP (LANSOPRAZOLE, CLARITHROMYCIN, AMOXICILLIN) (PREPARATION FOR OR [Suspect]
     Indication: HELICOBACTER INFECTION
     Dosage: 1 CARD (0.5 CARD, 2 IN 1 D) PER ORAL
     Route: 048
     Dates: start: 20070901, end: 20070907

REACTIONS (3)
  - DIARRHOEA [None]
  - DISSEMINATED INTRAVASCULAR COAGULATION [None]
  - PYREXIA [None]
